FAERS Safety Report 4639589-6 (Version None)
Quarter: 2005Q1

REPORT INFORMATION
  Report Type: 
  Country: None (occurrence: None)
  Receive Date: 20050328
  Receipt Date: 20050210
  Transmission Date: 20050727
  Serious: No
  Sender: FDA-Public Use
  Company Number: USA050290499

PATIENT
  Age: 8 Year
  Sex: Female
  Weight: 39 kg

DRUGS (3)
  1. STRATTERA [Suspect]
     Indication: ATTENTION DEFICIT/HYPERACTIVITY DISORDER
     Dosage: 36 MG IN THE MORNING
     Dates: start: 20041101
  2. TEGRETOL (CARBAMAZEPINE RIVOPHARM) [Concomitant]
  3. RITALIN [Concomitant]

REACTIONS (2)
  - ABDOMINAL PAIN UPPER [None]
  - NAUSEA [None]
